FAERS Safety Report 5892417-3 (Version None)
Quarter: 2008Q3

REPORT INFORMATION
  Report Type: 
  Country: None (occurrence: None)
  Receive Date: 20080923
  Receipt Date: 20080911
  Transmission Date: 20090109
  Serious: Yes (Other)
  Sender: FDA-Public Use
  Company Number: CA-JNJFOC-20080903584

PATIENT
  Age: 66 Year
  Sex: Male
  Weight: 109.77 kg

DRUGS (10)
  1. TYLENOL (CAPLET) [Suspect]
     Route: 048
  2. TYLENOL (CAPLET) [Suspect]
     Indication: ARTHRALGIA
     Route: 048
  3. LIPITOR [Concomitant]
  4. ASPIRIN [Concomitant]
  5. MULTI-VITAMIN [Concomitant]
  6. VITAMIN D [Concomitant]
  7. VITAMIN A [Concomitant]
  8. OMEGA 3-6-9 [Concomitant]
  9. CALCIUM SUPPLEMENT [Concomitant]
  10. GARLIC SUPPLEMENT [Concomitant]

REACTIONS (2)
  - HEPATOMEGALY [None]
  - LIVER INJURY [None]
